FAERS Safety Report 19831837 (Version 3)
Quarter: 2021Q4

REPORT INFORMATION
  Report Type: Report from Study
  Country: US (occurrence: US)
  Receive Date: 20210915
  Receipt Date: 20211019
  Transmission Date: 20220303
  Serious: No
  Sender: FDA-Public Use
  Company Number: NVSC2021US208589

PATIENT
  Sex: Male

DRUGS (1)
  1. ENTRESTO [Suspect]
     Active Substance: SACUBITRIL\VALSARTAN
     Indication: Product used for unknown indication
     Dosage: 50 MG, BID (24/26MG)
     Route: 048
     Dates: start: 20210810

REACTIONS (3)
  - Dyspnoea [Not Recovered/Not Resolved]
  - Decreased activity [Unknown]
  - Drug ineffective [Unknown]
